FAERS Safety Report 7292713-1 (Version None)
Quarter: 2011Q1

REPORT INFORMATION
  Report Type: 
  Country: None (occurrence: None)
  Receive Date: 20110215
  Receipt Date: 20110204
  Transmission Date: 20110831
  Serious: Yes (Hospitalization, Other)
  Sender: FDA-Public Use
  Company Number: US-NOVOPROD-322807

PATIENT
  Age: 80 Year
  Sex: Male
  Weight: 111 kg

DRUGS (2)
  1. VICTOZA [Suspect]
     Dosage: 1.2 MG, QD
     Route: 058
     Dates: end: 20101201
  2. VICTOZA [Suspect]
     Indication: TYPE 2 DIABETES MELLITUS
     Dosage: 0.6 MG, QD
     Route: 058
     Dates: start: 20101101

REACTIONS (3)
  - DEHYDRATION [None]
  - DECREASED APPETITE [None]
  - DIARRHOEA [None]
